FAERS Safety Report 5143011-3 (Version None)
Quarter: 2006Q4

REPORT INFORMATION
  Report Type: 
  Country: None (occurrence: None)
  Receive Date: 20061103
  Receipt Date: 20061010
  Transmission Date: 20070319
  Serious: Yes (Hospitalization)
  Sender: FDA-Public Use
  Company Number: GB-ELI_LILLY_AND_COMPANY-GB200610001691

PATIENT
  Age: 19 Year
  Sex: Male
  Weight: 71.2 kg

DRUGS (2)
  1. ZYPREXA [Suspect]
     Indication: PSYCHOTIC DISORDER
     Dosage: 20 MG, UNK
     Route: 048
     Dates: start: 20060630, end: 20060705
  2. DIAZEPAM [Concomitant]
     Indication: ANXIETY
     Dosage: 5 MG, 3/D
     Route: 048
     Dates: start: 20060630, end: 20060906

REACTIONS (4)
  - ALANINE AMINOTRANSFERASE INCREASED [None]
  - BLOOD ALKALINE PHOSPHATASE INCREASED [None]
  - HEPATIC ENZYME INCREASED [None]
  - PSYCHIATRIC SYMPTOM [None]
